FAERS Safety Report 6089228-5 (Version None)
Quarter: 2009Q1

REPORT INFORMATION
  Report Type: 
  Country: None (occurrence: None)
  Receive Date: 20090224
  Receipt Date: 20090213
  Transmission Date: 20090719
  Serious: Yes (Hospitalization, Other)
  Sender: FDA-Public Use
  Company Number: US-AVENTIS-200717714US

PATIENT
  Age: 19 Year
  Sex: Male

DRUGS (3)
  1. KETEK [Suspect]
     Indication: MALAISE
     Dosage: DOSE: UNK
     Dates: start: 20051026, end: 20051028
  2. KETEK [Suspect]
     Dosage: DOSE: UNK
     Dates: start: 20051026, end: 20051028
  3. KETEK [Suspect]
     Indication: TONSILLITIS
     Dosage: DOSE: UNK
     Dates: start: 20051026, end: 20051028

REACTIONS (30)
  - ARTHRALGIA [None]
  - ASTHENIA [None]
  - BILIRUBIN CONJUGATED INCREASED [None]
  - BLOOD ALKALINE PHOSPHATASE INCREASED [None]
  - BLOOD BILIRUBIN INCREASED [None]
  - CHILLS [None]
  - CHOLANGITIS [None]
  - CYTOMEGALOVIRUS ANTIBODY POSITIVE [None]
  - DECREASED APPETITE [None]
  - FATIGUE [None]
  - HEADACHE [None]
  - HEPATIC ENZYME INCREASED [None]
  - HEPATITIS VIRAL [None]
  - HYPERHIDROSIS [None]
  - JAUNDICE [None]
  - LETHARGY [None]
  - LYMPHADENOPATHY [None]
  - LYMPHOCYTE COUNT INCREASED [None]
  - MONOCYTE COUNT INCREASED [None]
  - MONONUCLEOSIS HETEROPHILE TEST POSITIVE [None]
  - MYALGIA [None]
  - NAUSEA [None]
  - PHARYNGEAL DISORDER [None]
  - PHARYNGEAL OEDEMA [None]
  - PYREXIA [None]
  - RASH MACULO-PAPULAR [None]
  - SPLENOMEGALY [None]
  - TRANSAMINASES INCREASED [None]
  - VOMITING [None]
  - WHITE BLOOD CELL COUNT INCREASED [None]
